FAERS Safety Report 22260854 (Version 1)
Quarter: 2023Q2

REPORT INFORMATION
  Report Type: Spontaneous
  Country: CA (occurrence: CA)
  Receive Date: 20230427
  Receipt Date: 20230427
  Transmission Date: 20230721
  Serious: Yes (Other)
  Sender: FDA-Public Use
  Company Number: CA-PFIZER INC-202300170359

PATIENT
  Age: 87 Year
  Sex: Male
  Weight: 68 kg

DRUGS (17)
  1. VYNDAQEL [Suspect]
     Active Substance: TAFAMIDIS MEGLUMINE
     Indication: Cardiac amyloidosis
     Dosage: 80 MG, 1X/DAY
     Route: 048
     Dates: start: 20230105
  2. VYNDAQEL [Suspect]
     Active Substance: TAFAMIDIS MEGLUMINE
     Indication: Cardiac amyloidosis
  3. ACETAMINOPHEN [Concomitant]
     Active Substance: ACETAMINOPHEN
     Dosage: 325 MG, 4X/DAY (4X DAILY)
  4. APIXABAN [Concomitant]
     Active Substance: APIXABAN
     Dosage: 2.5 MG, 2X/DAY(TWICE DAILY)
  5. BISOPROLOL [Concomitant]
     Active Substance: BISOPROLOL
     Dosage: 5 MG, 1X/DAY (5 MG IN THE MORNING)
  6. COLACE [Concomitant]
     Active Substance: DOCUSATE SODIUM
     Dosage: 200 MG, 1X/DAY
  7. DULOXETINE HYDROCHLORIDE [Concomitant]
     Active Substance: DULOXETINE HYDROCHLORIDE
     Dosage: 30 MG IN THE MORNING
  8. DUTASTERIDE [Concomitant]
     Active Substance: DUTASTERIDE
     Dosage: 0.5 MG IN THE EVENING
  9. FERROUS FUMARATE [Concomitant]
     Active Substance: FERROUS FUMARATE
     Dosage: 300 MG, IN THE EVENING
  10. FUROSEMIDE [Concomitant]
     Active Substance: FUROSEMIDE
     Dosage: 40 MG, IN THE MORNING,
  11. LASIX [Concomitant]
     Active Substance: FUROSEMIDE
     Dosage: 40 MG
  12. MIRTAZAPINE [Concomitant]
     Active Substance: MIRTAZAPINE
     Dosage: 15 MG, HALF A TABLET AT BEDTIME
  13. PANTOPRAZOLE [Concomitant]
     Active Substance: PANTOPRAZOLE
     Dosage: 40 MG, 1X/DAY
  14. PREGABALIN [Concomitant]
     Active Substance: PREGABALIN
     Dosage: 50 MG, 2X/DAY (TWICE DAILY)
  15. PERINDOPRIL [Concomitant]
     Active Substance: PERINDOPRIL
     Dosage: UNK
  16. ROSUVASTATIN [Concomitant]
     Active Substance: ROSUVASTATIN
     Dosage: 20 MG IN THE EVENING
  17. METFORMIN HYDROCHLORIDE\SITAGLIPTIN [Concomitant]
     Active Substance: METFORMIN HYDROCHLORIDE\SITAGLIPTIN
     Dosage: 500/500 MG,2X/DAY

REACTIONS (12)
  - Pulmonary hypertension [Unknown]
  - Cardiac failure chronic [Unknown]
  - Drug ineffective [Unknown]
  - Peripheral swelling [Unknown]
  - Dizziness [Unknown]
  - Oedema peripheral [Unknown]
  - Asthenia [Unknown]
  - Walking aid user [Unknown]
  - Gait disturbance [Unknown]
  - Exercise lack of [Unknown]
  - Diastolic dysfunction [Unknown]
  - Left atrial enlargement [Unknown]

NARRATIVE: CASE EVENT DATE: 20230424
